FAERS Safety Report 7524789-8 (Version None)
Quarter: 2011Q2

REPORT INFORMATION
  Report Type: 
  Country: None (occurrence: None)
  Receive Date: 20110606
  Receipt Date: 20110523
  Transmission Date: 20111010
  Serious: Yes (Other)
  Sender: FDA-Public Use
  Company Number: TR-RANBAXY-2011RR-43945

PATIENT
  Age: 34 Year
  Sex: Female

DRUGS (4)
  1. TOPIRAMATE [Suspect]
     Indication: GRAND MAL CONVULSION
     Dosage: 200 MG/DAY
  2. BARBEXACLONE [Suspect]
     Indication: GRAND MAL CONVULSION
     Dosage: 200 MG/DAY
  3. OXCARBAZEPINE [Suspect]
     Indication: GRAND MAL CONVULSION
     Dosage: 1800 MG/DAY
  4. VALPROIC ACID [Suspect]
     Indication: GRAND MAL CONVULSION
     Dosage: 250 MG/DAY

REACTIONS (4)
  - HYPERAMMONAEMIC ENCEPHALOPATHY [None]
  - ALTERED STATE OF CONSCIOUSNESS [None]
  - SOMNOLENCE [None]
  - DRUG INTERACTION [None]
